FAERS Safety Report 6607789-1 (Version None)
Quarter: 2010Q1

REPORT INFORMATION
  Report Type: 
  Country: None (occurrence: None)
  Receive Date: 20100301
  Receipt Date: 20100219
  Transmission Date: 20100710
  Serious: Yes (Other)
  Sender: FDA-Public Use
  Company Number: JP-ASTRAZENECA-2010SE08381

PATIENT
  Age: 61 Year
  Sex: Male

DRUGS (8)
  1. BLOPRESS [Suspect]
     Indication: HYPERTENSION
     Route: 048
     Dates: start: 20091203, end: 20100216
  2. CRESTOR [Concomitant]
     Route: 048
     Dates: start: 20090817
  3. PARIET [Concomitant]
     Route: 048
     Dates: start: 20090817
  4. ASPIRIN [Concomitant]
     Route: 048
     Dates: start: 20090817
  5. PLAVIX [Concomitant]
     Route: 048
     Dates: start: 20090817
  6. GANATON [Concomitant]
     Route: 048
     Dates: start: 20090910
  7. ZYLORIC [Concomitant]
     Route: 048
     Dates: start: 20090817
  8. CORTICOSTEROIDS [Concomitant]
     Route: 065
     Dates: start: 20100107

REACTIONS (1)
  - ERYTHEMA MULTIFORME [None]
